FAERS Safety Report 5240709-3 (Version None)
Quarter: 2007Q1

REPORT INFORMATION
  Report Type: 
  Country: None (occurrence: None)
  Receive Date: 20061208
  Receipt Date: 20051020
  Transmission Date: 20070707
  Serious: Yes (Other)
  Sender: FDA-Public Use
  Company Number: 2005UW15825

PATIENT
  Age: 82 Year
  Sex: Male

DRUGS (5)
  1. CRESTOR [Suspect]
     Dosage: 5 MG PO
     Route: 048
     Dates: start: 20050901
  2. TOPROL-XL [Concomitant]
  3. BABY ACETYLSALICYLIC ACID [Concomitant]
  4. ZESTRIL [Concomitant]
  5. CIPRO [Concomitant]

REACTIONS (5)
  - ARTHRALGIA [None]
  - FATIGUE [None]
  - HYPERHIDROSIS [None]
  - LARYNGITIS [None]
  - PYREXIA [None]
